FAERS Safety Report 9358809 (Version 2)
Quarter: 2013Q2

REPORT INFORMATION
  Report Type: Spontaneous
  Country: US (occurrence: US)
  Receive Date: 20130620
  Receipt Date: 20130626
  Transmission Date: 20140414
  Serious: Yes (Death, Other)
  Sender: FDA-Public Use
  Company Number: US-ALEXION PHARMACEUTICALS INC.-A201301399

PATIENT
  Sex: Male

DRUGS (14)
  1. SOLIRIS 300MG [Suspect]
     Indication: PAROXYSMAL NOCTURNAL HAEMOGLOBINURIA
     Dosage: UNK
     Route: 042
  2. ACYCLOVIR [Concomitant]
     Dosage: UNK
  3. PROCRIT [Concomitant]
     Dosage: UNK
  4. PROZAC [Concomitant]
     Dosage: UNK
  5. BENZONATATE [Concomitant]
     Dosage: UNK
  6. CLONAZEPAM [Concomitant]
     Dosage: UNK
  7. CRESTOR [Concomitant]
     Dosage: UNK
  8. FUROSEMIDE [Concomitant]
     Dosage: UNK
  9. METOPROLOL [Concomitant]
     Dosage: UNK
  10. MIRTAZAPINE [Concomitant]
     Dosage: UNK
  11. OMEPRAZOLE [Concomitant]
     Dosage: UNK
  12. PLAVIX [Concomitant]
     Dosage: UNK
  13. RAMIPRIL [Concomitant]
     Dosage: UNK
  14. URSODIOL [Concomitant]
     Dosage: UNK

REACTIONS (2)
  - Cardiac death [Fatal]
  - Fall [Unknown]
